FAERS Safety Report 14013101 (Version 1)
Quarter: 2017Q3

REPORT INFORMATION
  Report Type: Spontaneous
  Country: AU (occurrence: AU)
  Receive Date: 20170926
  Receipt Date: 20170926
  Transmission Date: 20171128
  Serious: Yes (Other)
  Sender: FDA-Public Use
  Company Number: AU-ELI_LILLY_AND_COMPANY-AU201709006572

PATIENT
  Sex: Male

DRUGS (1)
  1. ZYPREXA RELPREVV [Suspect]
     Active Substance: OLANZAPINE PAMOATE
     Indication: PRODUCT USED FOR UNKNOWN INDICATION
     Dosage: 300 MG, FIVE WEEKLY
     Route: 030

REACTIONS (8)
  - Pallor [Recovering/Resolving]
  - Agitation [Unknown]
  - Blood pressure abnormal [Recovering/Resolving]
  - Sedation [Not Recovered/Not Resolved]
  - Inappropriate schedule of drug administration [Unknown]
  - Somnolence [Not Recovered/Not Resolved]
  - Loss of consciousness [Recovering/Resolving]
  - Post-injection delirium sedation syndrome [Unknown]
